FAERS Safety Report 6107209-X (Version None)
Quarter: 2009Q1

REPORT INFORMATION
  Report Type: 
  Country: None (occurrence: None)
  Receive Date: 20090305
  Receipt Date: 20090305
  Transmission Date: 20090719
  Serious: Yes (Death)
  Sender: FDA-Public Use
  Company Number: None

PATIENT
  Age: 64 Year
  Sex: Female

DRUGS (7)
  1. RELISTOR [Suspect]
  2. .. [Concomitant]
  3. .. [Concomitant]
  4. .. [Concomitant]
  5. .. [Concomitant]
  6. .. [Concomitant]
  7. .. [Concomitant]

REACTIONS (3)
  - ABDOMINAL RIGIDITY [None]
  - ACIDOSIS [None]
  - INTESTINAL PERFORATION [None]
